FAERS Safety Report 7059493-6 (Version None)
Quarter: 2010Q4

REPORT INFORMATION
  Report Type: 
  Country: None (occurrence: None)
  Receive Date: 20101025
  Receipt Date: 20101014
  Transmission Date: 20110411
  Serious: Yes (Life-Threatening, Hospitalization, Disabling)
  Sender: FDA-Public Use
  Company Number: ES-PFIZER INC-2002121386ES

PATIENT
  Age: 40 Year
  Sex: Female
  Weight: 57 kg

DRUGS (1)
  1. PREPIDIL [Suspect]
     Indication: INDUCED LABOUR
     Dosage: 0.5 MG, SINGLE
     Route: 005
     Dates: start: 20020629, end: 20020629

REACTIONS (1)
  - DISSEMINATED INTRAVASCULAR COAGULATION [None]
